FAERS Safety Report 6451850-1 (Version None)
Quarter: 2009Q4

REPORT INFORMATION
  Report Type: 
  Country: None (occurrence: None)
  Receive Date: 20091123
  Receipt Date: 20091110
  Transmission Date: 20100525
  Serious: Yes (Hospitalization)
  Sender: FDA-Public Use
  Company Number: DE-ELI_LILLY_AND_COMPANY-DE200911003005

PATIENT
  Age: 50 Year
  Sex: Male
  Weight: 69 kg

DRUGS (2)
  1. ZYPREXA [Suspect]
     Indication: SCHIZOPHRENIA
     Dosage: 15 MG, UNK
     Route: 048
     Dates: start: 20020101, end: 20090508
  2. FLUANXOL DEPOT [Concomitant]
     Dosage: 44 MG, 2/M
     Route: 030
     Dates: start: 19920101

REACTIONS (1)
  - MYOCARDIAL INFARCTION [None]
